FAERS Safety Report 10381361 (Version 1)
Quarter: 2014Q1

REPORT INFORMATION
  Report Type: Spontaneous
  Country: US (occurrence: None)
  Receive Date: 20140306
  Receipt Date: 20140306
  Transmission Date: 20141002
  Serious: Yes (Hospitalization)
  Sender: FDA-Public Use
  Company Number: 163-21880-13024030

PATIENT
  Age: 71 Year
  Sex: Female
  Weight: 62.6 kg

DRUGS (11)
  1. REVLIMID (LENALIDOMIDE) (5 MILLIGRAM, CAPSULES) [Suspect]
     Indication: MYELODYSPLASTIC SYNDROME
     Route: 048
     Dates: start: 20080326
  2. B-12 (CYANOCOBALAMIN) (TABLETS) [Concomitant]
  3. CARDIZEM LA (DILTIAZEM HYDROCHLORIDE) [Concomitant]
  4. CLONAZEPAM (CLONAZEPAM) [Concomitant]
  5. COUMADIN (WARFARIN SODIUM) [Concomitant]
  6. OXYBUTYNIN CHLORIDE (OXYBUTYNIN HYDROCHLORIDE) [Concomitant]
  7. SUPER B COMPLEX (B-KOMPLEX ^LECIVA^) [Concomitant]
  8. TIKOSYN (DOFETILIDE) [Concomitant]
  9. NITROGLYCERINE (GLYCERYL TRINITRATE) [Concomitant]
  10. ASPIRIN (ACETYLSALICYLIC ACID) [Concomitant]
  11. ACETAMINOPHEN (PARACETAMOL) [Concomitant]

REACTIONS (1)
  - Pneumonia streptococcal [None]
